FAERS Safety Report 24876230 (Version 1)
Quarter: 2025Q1

REPORT INFORMATION
  Report Type: Spontaneous
  Country: US (occurrence: US)
  Receive Date: 20250123
  Receipt Date: 20250123
  Transmission Date: 20250409
  Serious: No
  Sender: AUROBINDO
  Company Number: US-AUROBINDO-AUR-APL-2024-043622

PATIENT
  Age: 37 Year
  Sex: Female
  Weight: 46.7 kg

DRUGS (1)
  1. PROGESTERONE [Suspect]
     Active Substance: PROGESTERONE
     Indication: Product used for unknown indication
     Route: 065
     Dates: start: 20240801

REACTIONS (4)
  - Migraine [Unknown]
  - Exposure during pregnancy [Unknown]
  - Recalled product administered [Unknown]
  - Product dispensing error [Unknown]
